FAERS Safety Report 13610384 (Version 1)
Quarter: 2017Q2

REPORT INFORMATION
  Report Type: Spontaneous
  Country: US (occurrence: US)
  Receive Date: 20170602
  Receipt Date: 20170602
  Transmission Date: 20170830
  Serious: No
  Sender: FDA-Public Use
  Company Number: None

PATIENT
  Age: 52 Year
  Sex: Female

DRUGS (1)
  1. STELARA [Suspect]
     Active Substance: USTEKINUMAB
     Dosage: 90MG Q 12 WKS SQ
     Route: 058

REACTIONS (3)
  - Meningitis [None]
  - Seizure [None]
  - Concussion [None]

NARRATIVE: CASE EVENT DATE: 20170524
